FAERS Safety Report 11412563 (Version 1)
Quarter: 2015Q3

REPORT INFORMATION
  Report Type: Spontaneous
  Country: US (occurrence: US)
  Receive Date: 20150821
  Receipt Date: 20150821
  Transmission Date: 20151125
  Serious: No
  Sender: FDA-Public Use
  Company Number: US-ELI_LILLY_AND_COMPANY-US201107002393

PATIENT
  Age: 63 Year
  Sex: Female

DRUGS (8)
  1. HUMULIN N [Suspect]
     Active Substance: INSULIN HUMAN
     Dosage: 5 U, UNK
     Dates: start: 201106
  2. HUMULIN N [Suspect]
     Active Substance: INSULIN HUMAN
     Dosage: 35 U, BID
  3. HUMULIN N [Suspect]
     Active Substance: INSULIN HUMAN
     Dosage: 35 U, BID
  4. HUMULIN N [Suspect]
     Active Substance: INSULIN HUMAN
     Indication: TYPE 2 DIABETES MELLITUS
     Dosage: UNK UNK, BID
     Dates: start: 2006, end: 201006
  5. HUMULIN N [Suspect]
     Active Substance: INSULIN HUMAN
     Dosage: 35 U, BID
  6. NOVOLIN [Concomitant]
     Active Substance: INSULIN HUMAN
     Indication: DIABETES MELLITUS
  7. INSULIN ZINC [Concomitant]
     Active Substance: INSULIN NOS
     Indication: DIABETES MELLITUS
  8. METFORMIN [Concomitant]
     Active Substance: METFORMIN HYDROCHLORIDE
     Indication: DIABETES MELLITUS
     Dosage: 2000 MG, QD

REACTIONS (25)
  - Urticaria [Recovered/Resolved]
  - Trismus [Unknown]
  - Blood glucose increased [Not Recovered/Not Resolved]
  - Pharyngeal oedema [Unknown]
  - Lip swelling [Unknown]
  - Malaise [Unknown]
  - Pain in extremity [Unknown]
  - Swollen tongue [Unknown]
  - Stress [Unknown]
  - Dysphonia [Unknown]
  - Muscle disorder [Unknown]
  - Blood pressure increased [Unknown]
  - Drug hypersensitivity [Not Recovered/Not Resolved]
  - Feeling hot [Unknown]
  - Middle insomnia [Unknown]
  - Arthropathy [Unknown]
  - C-reactive protein increased [Unknown]
  - Glycosylated haemoglobin increased [Unknown]
  - Joint swelling [Unknown]
  - Inflammation [Unknown]
  - Rash macular [Unknown]
  - Pancreatic disorder [Not Recovered/Not Resolved]
  - Metabolic syndrome [Not Recovered/Not Resolved]
  - Activities of daily living impaired [Unknown]
  - Asthenia [Unknown]

NARRATIVE: CASE EVENT DATE: 2006
